FAERS Safety Report 17158013 (Version 2)
Quarter: 2019Q4

REPORT INFORMATION
  Report Type: Spontaneous
  Country: US (occurrence: US)
  Receive Date: 20191216
  Receipt Date: 20191227
  Transmission Date: 20200122
  Serious: Yes (Hospitalization)
  Sender: FDA-Public Use
  Company Number: US-CELGENEUS-USA-20191203627

PATIENT
  Age: 56 Year
  Sex: Male
  Weight: 69.9 kg

DRUGS (5)
  1. NAPABUCASIN [Suspect]
     Active Substance: NAPABUCASIN
     Indication: PANCREATIC CARCINOMA METASTATIC
     Route: 048
  2. GEMCITABINE. [Suspect]
     Active Substance: GEMCITABINE
     Indication: PANCREATIC CARCINOMA METASTATIC
     Dosage: 100 MILLIGRAM
     Route: 041
     Dates: start: 20171206, end: 20181114
  3. JANUVIA [Concomitant]
     Active Substance: SITAGLIPTIN PHOSPHATE
     Indication: PRODUCT USED FOR UNKNOWN INDICATION
     Route: 065
     Dates: start: 201806
  4. XARELTO [Concomitant]
     Active Substance: RIVAROXABAN
     Indication: DEEP VEIN THROMBOSIS
     Route: 065
     Dates: start: 20180502
  5. ABRAXANE [Suspect]
     Active Substance: PACLITAXEL
     Indication: PANCREATIC CARCINOMA METASTATIC
     Dosage: 100 MILLIGRAM
     Route: 041
     Dates: start: 20171206, end: 20180530

REACTIONS (1)
  - Respiratory failure [Recovered/Resolved]

NARRATIVE: CASE EVENT DATE: 20181125
